FAERS Safety Report 9714176 (Version 1)
Quarter: 2013Q4

REPORT INFORMATION
  Report Type: Spontaneous
  Country: US (occurrence: US)
  Receive Date: 20131126
  Receipt Date: 20131126
  Transmission Date: 20140711
  Serious: No
  Sender: FDA-Public Use
  Company Number: US-GILEAD-2008-0019197

PATIENT
  Sex: Male

DRUGS (10)
  1. LETAIRIS [Suspect]
     Indication: PULMONARY ARTERIAL HYPERTENSION
     Route: 048
     Dates: start: 20081117
  2. LETAIRIS [Suspect]
     Route: 048
     Dates: start: 20080829, end: 20081117
  3. LETAIRIS [Suspect]
     Route: 048
     Dates: start: 20080310, end: 20080829
  4. COUMADIN [Concomitant]
  5. LASIX [Concomitant]
  6. SPIRONOLACTONE [Concomitant]
  7. METOPROLOL [Concomitant]
  8. ALLOPURINOL [Concomitant]
  9. PREDNISONE [Concomitant]
  10. SPIRIVA [Concomitant]

REACTIONS (1)
  - Dyspnoea [None]
